FAERS Safety Report 6012618-3 (Version None)
Quarter: 2008Q4

REPORT INFORMATION
  Report Type: 
  Country: None (occurrence: None)
  Receive Date: 20081217
  Receipt Date: 20081204
  Transmission Date: 20090506
  Serious: Yes (Other)
  Sender: FDA-Public Use
  Company Number: 2008SP024994

PATIENT
  Age: 94 Year
  Sex: Male

DRUGS (7)
  1. DIAFUSOR (GLYCERYL TRINITRATE) (GLYCERYL TRINITRATE) [Suspect]
     Indication: DRUG USE FOR UNKNOWN INDICATION
     Dosage: 5 MG; CUT
     Route: 003
  2. NOCTRAN (NOCTRAN 10) [Suspect]
     Indication: DRUG USE FOR UNKNOWN INDICATION
     Dosage: 10 ;
  3. LAMALINE (PARACETAMIL, OPIUM, CAFFEINE) (LAMALINE /01708901/) [Suspect]
     Indication: DRUG USE FOR UNKNOWN INDICATION
     Dosage: ; PO
     Route: 048
  4. PAROXETINE HYDROCHLORIDE [Suspect]
     Indication: DRUG USE FOR UNKNOWN INDICATION
     Dosage: 20 MG; PO
     Route: 048
  5. IDARAC [Concomitant]
  6. CACIT D3 [Concomitant]
  7. KARDEGIC /01740801/ [Concomitant]

REACTIONS (7)
  - ASTHENIA [None]
  - CARDIAC FAILURE [None]
  - DISEASE RECURRENCE [None]
  - FALL [None]
  - HYPOTENSION [None]
  - LUNG INFECTION [None]
  - OSTEOARTHRITIS [None]
